FAERS Safety Report 25657037 (Version 1)
Quarter: 2025Q3

REPORT INFORMATION
  Report Type: Spontaneous
  Country: EU (occurrence: EU)
  Receive Date: 20250807
  Receipt Date: 20250807
  Transmission Date: 20251020
  Serious: Yes (Other)
  Sender: ABBVIE
  Company Number: EU-JNJFOC-20250803927

PATIENT
  Age: 74 Year
  Sex: Male

DRUGS (1)
  1. IBRUTINIB [Suspect]
     Active Substance: IBRUTINIB
     Indication: Plasma cell myeloma
     Route: 065

REACTIONS (4)
  - Polyneuropathy [Unknown]
  - Impaired healing [Unknown]
  - Onychoclasis [Unknown]
  - Off label use [Unknown]
